FAERS Safety Report 6055812-8 (Version None)
Quarter: 2009Q1

REPORT INFORMATION
  Report Type: 
  Country: None (occurrence: None)
  Receive Date: 20090128
  Receipt Date: 20090121
  Transmission Date: 20090719
  Serious: Yes (Death, Hospitalization)
  Sender: FDA-Public Use
  Company Number: FR-WYE-G02976209

PATIENT
  Sex: Female
  Weight: 74 kg

DRUGS (33)
  1. TAZOCILLINE [Suspect]
     Indication: KLEBSIELLA INFECTION
     Route: 042
     Dates: start: 20081120, end: 20081128
  2. CIFLOX [Suspect]
     Dosage: 200 MG/ML STRENGTH; FREQUENCY UNSPECIFIED
     Route: 042
     Dates: start: 20081124, end: 20081128
  3. THYMOGLOBULIN [Suspect]
     Dates: start: 20081119, end: 20081120
  4. RASBURICASE [Suspect]
     Indication: HYPERURICAEMIA
     Route: 042
     Dates: start: 20081114, end: 20081114
  5. TREOSULFAN [Suspect]
     Route: 042
     Dates: start: 20081115, end: 20081117
  6. CYCLOSPORINE [Suspect]
     Indication: PROPHYLAXIS AGAINST TRANSPLANT REJECTION
     Dosage: UNKNOWN
     Dates: start: 20081122, end: 20081202
  7. METHOTREXATE [Suspect]
     Indication: PROPHYLAXIS AGAINST TRANSPLANT REJECTION
     Dosage: UNKNOWN
     Dates: start: 20081122, end: 20081202
  8. ZYLORIC [Suspect]
     Route: 048
     Dates: start: 20081120
  9. INIPOMP [Suspect]
     Route: 048
     Dates: start: 20081113
  10. TOPALGIC [Suspect]
     Route: 042
     Dates: start: 20081119
  11. TEMESTA [Concomitant]
     Dosage: 5 MG TOTAL DAILY
     Route: 048
     Dates: start: 20081113
  12. BETAGAN [Concomitant]
     Dates: start: 20081113
  13. VITAMIN A [Concomitant]
     Route: 047
     Dates: start: 20081113
  14. FUNGIZONE [Concomitant]
     Dosage: 2 G TOTAL DAILY
     Route: 048
     Dates: start: 20081115
  15. VANCOMYCIN [Concomitant]
     Dates: start: 20081115
  16. OMEPRAZOLE [Concomitant]
     Route: 042
     Dates: start: 20081120
  17. ZOVIRAX [Concomitant]
     Route: 042
     Dates: start: 20081122
  18. IMODIUM [Concomitant]
     Indication: DIARRHOEA
     Dosage: 4 MG TOTAL DAILY
     Route: 048
     Dates: start: 20081123
  19. ALUMINUM HYDROXIDE AND MAGNESIUM TRISILICATE [Concomitant]
     Indication: DIARRHOEA
     Dosage: 2 SACHETS TOTAL DAILY
     Route: 048
     Dates: start: 20081123
  20. CORDARONE [Concomitant]
     Indication: ARRHYTHMIA
     Dosage: 600 MG TOTAL DAILY
     Route: 042
     Dates: start: 20081124, end: 20081128
  21. DOBUTREX [Concomitant]
     Indication: ARRHYTHMIA
     Route: 042
     Dates: start: 20081124, end: 20081128
  22. LOXEN [Concomitant]
     Dates: start: 20081125
  23. FLAGYL [Concomitant]
     Dates: start: 20081125
  24. BISOPROLOL [Concomitant]
     Route: 048
  25. TAREG [Concomitant]
     Route: 048
  26. ANAFRANIL [Concomitant]
     Route: 048
  27. TERCIAN [Concomitant]
     Route: 048
  28. NOCTRAN 10 [Concomitant]
     Route: 048
  29. OMEPRAZOLE [Concomitant]
     Route: 048
  30. FORLAX [Concomitant]
     Dosage: 20 MG DAILY; ON REQUEST
     Route: 048
  31. DAFALGAN [Concomitant]
     Dosage: 1.5 MG TOTAL DAILY
     Route: 048
  32. VFEND [Concomitant]
     Dosage: UNKNOWN
     Dates: start: 20080701
  33. FLUDARA [Suspect]
     Dates: start: 20081115, end: 20081119

REACTIONS (3)
  - CHOLESTASIS [None]
  - STUPOR [None]
  - TOXIC EPIDERMAL NECROLYSIS [None]
